FAERS Safety Report 6776989 (Version 18)
Quarter: 2013Q2

REPORT INFORMATION
  Report Type: Spontaneous
  Country: US (occurrence: US)
  Receive Date: 20081002
  Receipt Date: 20130508
  Transmission Date: 20140414
  Serious: Yes (Hospitalization, Other)
  Sender: FDA-Public Use
  Company Number: US-ROCHE-552281

PATIENT
  Age: 13 Year
  Sex: Female
  Weight: 45.4 kg

DRUGS (19)
  1. ACCUTANE [Suspect]
     Indication: ACNE
     Dosage: THE PATIENT WAS TAKING ISOTRETINOIN 10 MG EVERY OTHER DAY.
     Route: 048
     Dates: start: 19990301, end: 19990328
  2. ACCUTANE [Suspect]
     Route: 048
     Dates: start: 19990329, end: 19990330
  3. ACCUTANE [Suspect]
     Route: 048
     Dates: start: 19990331, end: 19990411
  4. ACCUTANE [Suspect]
     Route: 048
     Dates: start: 19990412, end: 19990426
  5. ACCUTANE [Suspect]
     Route: 048
     Dates: start: 19990427, end: 19990524
  6. ACCUTANE [Suspect]
     Dosage: THE PATIENT WAS TAKING ISOTRETINOIN 40 MG ALTERNATING WITH 60 MG DAILY.
     Route: 048
     Dates: start: 19990525, end: 19990701
  7. ACCUTANE [Suspect]
     Route: 048
     Dates: start: 19990702, end: 19990810
  8. ACCUTANE [Suspect]
     Route: 048
     Dates: start: 20031208, end: 20040104
  9. ACCUTANE [Suspect]
     Route: 048
     Dates: start: 20040105, end: 20040228
  10. ACCUTANE [Suspect]
     Route: 048
     Dates: start: 20040301, end: 20040429
  11. ACCUTANE [Suspect]
     Route: 048
     Dates: start: 20040430, end: 20040719
  12. ACCUTANE [Suspect]
     Route: 048
     Dates: start: 20040720, end: 20040823
  13. ACCUTANE [Suspect]
     Dosage: THE PATIENT WAS TAKING ISOTRETINOIN 10 MG EVERY MONDAYS, WEDNESDAYS, AND FRIDAYS.
     Route: 048
     Dates: start: 20040824, end: 20041014
  14. ACCUTANE [Suspect]
     Dosage: THE PATIENT WAS TAKING ISOTRETINOIN 10 MG EVERY MONDAYS AND FRIDAYS.
     Route: 048
     Dates: start: 20041015, end: 20041222
  15. ACCUTANE [Suspect]
     Dosage: THE PATIENT WAS TAKING ISOTRETINOIN 10 MG EVERY OTHER DAY.
     Route: 048
     Dates: start: 20041223, end: 200505
  16. PROVIGIL [Concomitant]
  17. LEXAPRO [Concomitant]
  18. TRAZODONE [Concomitant]
  19. REMICADE [Concomitant]

REACTIONS (25)
  - Anal fistula [Recovering/Resolving]
  - Inflammatory bowel disease [Recovering/Resolving]
  - Crohn^s disease [Not Recovered/Not Resolved]
  - Depression [Not Recovered/Not Resolved]
  - Major depression [Unknown]
  - Perirectal abscess [Recovered/Resolved]
  - Blood triglycerides abnormal [Recovered/Resolved]
  - Ileal stenosis [Unknown]
  - Coeliac disease [Unknown]
  - Insomnia [Unknown]
  - Lip dry [Unknown]
  - Epistaxis [Recovering/Resolving]
  - Dry mouth [Unknown]
  - Nasal dryness [Unknown]
  - Back pain [Unknown]
  - Arthralgia [Unknown]
  - Dry skin [Unknown]
  - Hepatomegaly [Unknown]
  - Pharyngitis [Unknown]
  - Viral infection [Recovering/Resolving]
  - Toothache [Unknown]
  - Breast hyperplasia [Recovered/Resolved]
  - Blood cholesterol increased [Recovered/Resolved]
  - Anal fissure [Unknown]
  - Anxiety [Not Recovered/Not Resolved]
